FAERS Safety Report 25017486 (Version 2)
Quarter: 2025Q3

REPORT INFORMATION
  Report Type: Spontaneous
  Country: EU (occurrence: EU)
  Receive Date: 20250227
  Receipt Date: 20250818
  Transmission Date: 20251020
  Serious: Yes (Other)
  Sender: CSL BEHRING
  Company Number: EU-BEH-2025196910

PATIENT
  Age: 54 Year
  Sex: Male

DRUGS (7)
  1. VELTASSA [Suspect]
     Active Substance: PATIROMER
     Indication: Renin-angiotensin system inhibition
     Route: 065
     Dates: start: 20220523
  2. VELTASSA [Suspect]
     Active Substance: PATIROMER
     Route: 065
  3. VELTASSA [Suspect]
     Active Substance: PATIROMER
     Route: 065
  4. SACUBITRIL\VALSARTAN [Concomitant]
     Active Substance: SACUBITRIL\VALSARTAN
  5. SPIRONOLACTONE [Concomitant]
     Active Substance: SPIRONOLACTONE
  6. Clortalidone [Concomitant]
  7. LERCANIDIPINE [Concomitant]
     Active Substance: LERCANIDIPINE

REACTIONS (3)
  - Chronic kidney disease [Unknown]
  - Cardiac failure [Unknown]
  - Hypercalcaemia [Unknown]

NARRATIVE: CASE EVENT DATE: 20230101
